FAERS Safety Report 9783071 (Version 2)
Quarter: 2014Q1

REPORT INFORMATION
  Report Type: Report from Study
  Country: CA (occurrence: CA)
  Receive Date: 20131226
  Receipt Date: 20140124
  Transmission Date: 20141002
  Serious: Yes (Hospitalization)
  Sender: FDA-Public Use
  Company Number: CA-JNJFOC-20131213471

PATIENT
  Age: 34 Year
  Sex: Male
  Weight: 73 kg

DRUGS (6)
  1. REMICADE [Suspect]
     Indication: COLITIS ULCERATIVE
     Route: 042
     Dates: start: 20131209
  2. REMICADE [Suspect]
     Indication: COLITIS ULCERATIVE
     Route: 042
     Dates: start: 20131225
  3. IMURAN [Concomitant]
     Route: 048
  4. FERROUS SULPHATE [Concomitant]
     Route: 048
  5. PENTASA [Concomitant]
     Route: 065
  6. PREDNISONE [Concomitant]
     Dosage: TAPERING.
     Route: 048

REACTIONS (5)
  - Investigation [Recovered/Resolved]
  - Crohn^s disease [Unknown]
  - Fatigue [Unknown]
  - Pyrexia [Unknown]
  - Asthenia [Unknown]
